FAERS Safety Report 4839609-X (Version None)
Quarter: 2005Q4

REPORT INFORMATION
  Report Type: 
  Country: None (occurrence: None)
  Receive Date: 20051129
  Receipt Date: 20051123
  Transmission Date: 20060501
  Serious: Yes (Death)
  Sender: FDA-Public Use
  Company Number: FR-AVENTIS-200513840FR

PATIENT
  Age: 67 Year
  Sex: Female

DRUGS (4)
  1. FLAGYL [Suspect]
     Indication: ABDOMINAL ABSCESS
     Route: 048
     Dates: start: 20051014, end: 20051018
  2. SULFASALAZINE [Suspect]
     Route: 048
  3. SMECTA [Suspect]
     Route: 048
  4. AUGMENTIN [Suspect]
     Indication: ABDOMINAL ABSCESS
     Route: 048
     Dates: start: 20051014, end: 20051018

REACTIONS (2)
  - COLON CANCER [None]
  - TOXIC EPIDERMAL NECROLYSIS [None]
